FAERS Safety Report 5520037-9 (Version None)
Quarter: 2007Q4

REPORT INFORMATION
  Report Type: 
  Country: None (occurrence: None)
  Receive Date: 20071114
  Receipt Date: 20071107
  Transmission Date: 20080405
  Serious: Yes (Death)
  Sender: FDA-Public Use
  Company Number: 17771

PATIENT
  Age: 51 Year
  Sex: Male

DRUGS (4)
  1. LEUCOVORIN CALCIUM [Suspect]
     Indication: COLON CANCER STAGE IV
     Dosage: 400 MG/M2 ONCE IV
     Route: 042
     Dates: start: 20070917, end: 20070917
  2. AVASTIN [Suspect]
     Indication: COLON CANCER STAGE IV
     Dosage: 5 MG/KG ONCE IV
     Route: 042
     Dates: start: 20070917, end: 20070917
  3. FLUOROURACIL [Suspect]
     Indication: COLON CANCER STAGE IV
     Dosage: 2400 MG/M2 OTH IV
     Route: 042
     Dates: start: 20070917, end: 20070919
  4. OXALIPLATIN [Suspect]
     Indication: COLON CANCER STAGE IV
     Dosage: 85 MG/M2 ONCE IV
     Route: 042
     Dates: start: 20070917, end: 20070917

REACTIONS (1)
  - SUDDEN DEATH [None]
